FAERS Safety Report 5180926-4 (Version None)
Quarter: 2006Q4

REPORT INFORMATION
  Report Type: 
  Country: None (occurrence: None)
  Receive Date: 20061218
  Receipt Date: 20061218
  Transmission Date: 20070319
  Serious: No
  Sender: FDA-Public Use
  Company Number: None

PATIENT
  Age: 23 Year
  Sex: Female

DRUGS (1)
  1. HUMIRA [Suspect]
     Indication: CROHN'S DISEASE
     Dosage: 40MG   EVERY OTHER WEEK  SQ
     Route: 058
     Dates: start: 20061212, end: 20061212

REACTIONS (1)
  - INJECTION SITE IRRITATION [None]
